FAERS Safety Report 5978102-8 (Version None)
Quarter: 2008Q4

REPORT INFORMATION
  Report Type: 
  Country: None (occurrence: None)
  Receive Date: 20081204
  Receipt Date: 20081125
  Transmission Date: 20090506
  Serious: Yes (Hospitalization)
  Sender: FDA-Public Use
  Company Number: TR-RANBAXY-2008RR-19592

PATIENT
  Age: 40 Year
  Sex: Male

DRUGS (1)
  1. CODEINE SUL TAB [Suspect]
     Indication: COUGH

REACTIONS (1)
  - MANIA [None]
